FAERS Safety Report 14026397 (Version 1)
Quarter: 2017Q3

REPORT INFORMATION
  Report Type: Spontaneous
  Country: US (occurrence: US)
  Receive Date: 20170929
  Receipt Date: 20170929
  Transmission Date: 20171128
  Serious: No
  Sender: FDA-Public Use
  Company Number: US-009507513-1709USA009841

PATIENT
  Age: 28 Year
  Sex: Male

DRUGS (2)
  1. EFFEXOR [Concomitant]
     Active Substance: VENLAFAXINE HYDROCHLORIDE
     Dosage: UNK
  2. BELSOMRA [Suspect]
     Active Substance: SUVOREXANT
     Indication: INSOMNIA
     Route: 048

REACTIONS (4)
  - Alcohol use [Recovered/Resolved]
  - Aggression [Recovered/Resolved]
  - Contraindicated product administered [Unknown]
  - Alcohol interaction [Recovered/Resolved]
